FAERS Safety Report 25265290 (Version 2)
Quarter: 2025Q2

REPORT INFORMATION
  Report Type: Report from Study
  Country: US (occurrence: US)
  Receive Date: 20250502
  Receipt Date: 20250602
  Transmission Date: 20250717
  Serious: Yes (Hospitalization, Other)
  Sender: ALEXION PHARMACEUTICALS
  Company Number: US-AstraZeneca-CH-00857066A

PATIENT

DRUGS (1)
  1. ULTOMIRIS [Suspect]
     Active Substance: RAVULIZUMAB-CWVZ
     Indication: Myasthenia gravis
     Route: 065

REACTIONS (8)
  - Cystitis [Unknown]
  - Urinary tract infection [Recovered/Resolved]
  - Diverticulitis [Recovering/Resolving]
  - Sepsis [Unknown]
  - Faeces discoloured [Unknown]
  - Fall [Unknown]
  - Craniofacial fracture [Unknown]
  - Spinal fracture [Unknown]
